FAERS Safety Report 6332122-2 (Version None)
Quarter: 2009Q3

REPORT INFORMATION
  Report Type: 
  Country: None (occurrence: None)
  Receive Date: 20090826
  Receipt Date: 20090826
  Transmission Date: 20100115
  Serious: Yes (Hospitalization, Congenital Anomaly)
  Sender: FDA-Public Use
  Company Number: None

PATIENT
  Sex: Female
  Weight: 108.8633 kg

DRUGS (2)
  1. RESPERDONE 6MG ? [Suspect]
     Indication: SCHIZOPHRENIA, PARANOID TYPE
     Dosage: 6MG 1X PO
     Route: 048
     Dates: start: 20030219, end: 20090826
  2. HALDOL [Suspect]
     Dosage: 1X IM
     Route: 030
     Dates: start: 19930601, end: 20090201

REACTIONS (1)
  - NO ADVERSE EVENT [None]
